FAERS Safety Report 5070057-6 (Version None)
Quarter: 2006Q3

REPORT INFORMATION
  Report Type: 
  Country: None (occurrence: None)
  Receive Date: 20060714
  Receipt Date: 20060406
  Transmission Date: 20061208
  Serious: No
  Sender: FDA-Public Use
  Company Number: 2006SP001584

PATIENT
  Age: 71 Year
  Sex: Female
  Weight: 69.4003 kg

DRUGS (4)
  1. LUNESTA [Suspect]
     Indication: INSOMNIA
     Dosage: 1 MG; PRN; ORAL; SEE IMAGE
     Route: 048
     Dates: start: 20060316, end: 20060317
  2. LUNESTA [Suspect]
     Indication: INSOMNIA
     Dosage: 1 MG; PRN; ORAL; SEE IMAGE
     Route: 048
     Dates: start: 20060318, end: 20060318
  3. ATORVASTATIN CALCIUM [Concomitant]
  4. METFORMIN [Concomitant]

REACTIONS (2)
  - DRUG INEFFECTIVE [None]
  - MIDDLE INSOMNIA [None]
